FAERS Safety Report 8618741 (Version 5)
Quarter: 2018Q4

REPORT INFORMATION
  Report Type: Spontaneous
  Country: BR (occurrence: BR)
  Receive Date: 20120618
  Receipt Date: 20181210
  Transmission Date: 20190205
  Serious: Yes (Hospitalization, Other)
  Sender: FDA-Public Use
  Company Number: BR-JNJFOC-20120605023

PATIENT
  Sex: Female
  Weight: 70 kg

DRUGS (12)
  1. EXELON [Concomitant]
     Active Substance: RIVASTIGMINE TARTRATE
     Route: 065
  2. ANCORON [Concomitant]
     Active Substance: AMIODARONE HYDROCHLORIDE
     Route: 065
  3. REMICADE [Suspect]
     Active Substance: INFLIXIMAB
     Indication: CROHN^S DISEASE
     Route: 042
     Dates: start: 2007, end: 201803
  4. RIVOTRIL [Concomitant]
     Active Substance: CLONAZEPAM
     Indication: SLEEP DISORDER THERAPY
     Route: 065
  5. QUEROPAX [Concomitant]
     Active Substance: QUETIAPINE FUMARATE
     Route: 065
  6. PANTOPRAZOLE [Concomitant]
     Active Substance: PANTOPRAZOLE
     Indication: GASTROINTESTINAL DISORDER THERAPY
     Route: 065
  7. PROPANOLOL [Concomitant]
     Active Substance: PROPRANOLOL HYDROCHLORIDE
     Route: 065
  8. ZIDER [Concomitant]
     Active Substance: MEMANTINE HYDROCHLORIDE
     Route: 065
  9. LEVOID [Concomitant]
     Active Substance: LEVOTHYROXINE
     Route: 065
  10. REMICADE [Suspect]
     Active Substance: INFLIXIMAB
     Indication: RHEUMATOID ARTHRITIS
     Route: 042
     Dates: start: 2007, end: 201803
  11. SYNTHROID [Concomitant]
     Active Substance: LEVOTHYROXINE SODIUM
     Indication: THYROID DISORDER
     Route: 065
  12. IMURAN [Concomitant]
     Active Substance: AZATHIOPRINE
     Indication: RHEUMATOID ARTHRITIS
     Route: 065
     Dates: start: 2007

REACTIONS (16)
  - Eye operation [Recovering/Resolving]
  - Pneumonia [Recovered/Resolved]
  - Haemorrhoidal haemorrhage [Unknown]
  - Cerebral ischaemia [Recovered/Resolved with Sequelae]
  - Gait disturbance [Unknown]
  - Arrhythmia [Not Recovered/Not Resolved]
  - Dementia Alzheimer^s type [Not Recovered/Not Resolved]
  - Drug effect decreased [Unknown]
  - Food poisoning [Recovered/Resolved]
  - Urinary tract infection [Recovered/Resolved]
  - Feeding disorder [Unknown]
  - Inadequate lubrication [Recovering/Resolving]
  - Ocular hyperaemia [Recovering/Resolving]
  - Hypertension [Not Recovered/Not Resolved]
  - Infection [Unknown]
  - Hernia [Recovered/Resolved]

NARRATIVE: CASE EVENT DATE: 2010
